FAERS Safety Report 5375660-1 (Version None)
Quarter: 2007Q2

REPORT INFORMATION
  Report Type: 
  Country: None (occurrence: None)
  Receive Date: 20070628
  Receipt Date: 20070621
  Transmission Date: 20071010
  Serious: No
  Sender: FDA-Public Use
  Company Number: 2007-02765

PATIENT
  Age: 46 Year
  Sex: Female

DRUGS (4)
  1. DIETHYLPROPION (DIETHYLPROPION HYDROCHLORIDE) TABLET, 25MG [Suspect]
     Indication: DECREASED APPETITE
     Dosage: 2 TABLET, DAILY; ORAL
     Route: 048
     Dates: start: 20070530
  2. DIETHYLPROPION (DIETHYLPROPION HYDROCHLORIDE) TABLET, 25MG [Suspect]
     Indication: WEIGHT CONTROL
     Dosage: 2 TABLET, DAILY; ORAL
     Route: 048
     Dates: start: 20070530
  3. DIETHYLPROPION HYDROCHLORIDE [Suspect]
     Indication: DECREASED APPETITE
     Dosage: 1 TABLET, DAILY; ORAL
     Route: 048
     Dates: start: 20070424, end: 20070429
  4. DIETHYLPROPION HYDROCHLORIDE [Suspect]
     Indication: WEIGHT CONTROL
     Dosage: 1 TABLET, DAILY; ORAL
     Route: 048
     Dates: start: 20070424, end: 20070429

REACTIONS (3)
  - CONDITION AGGRAVATED [None]
  - DEPRESSION [None]
  - DEPRESSION SUICIDAL [None]
